FAERS Safety Report 25059591 (Version 5)
Quarter: 2025Q2

REPORT INFORMATION
  Report Type: Report from Study
  Country: DE (occurrence: DE)
  Receive Date: 20250310
  Receipt Date: 20250505
  Transmission Date: 20250717
  Serious: Yes (Other)
  Sender: ABBVIE
  Company Number: DE-JNJFOC-20250302131

PATIENT
  Age: 59 Year
  Sex: Female

DRUGS (15)
  1. IBRUTINIB [Suspect]
     Active Substance: IBRUTINIB
     Indication: Lymphocytic lymphoma
     Route: 048
     Dates: start: 20240926, end: 20241024
  2. IBRUTINIB [Suspect]
     Active Substance: IBRUTINIB
     Indication: Lymphocytic lymphoma
     Route: 048
     Dates: start: 20241025, end: 20241128
  3. IBRUTINIB [Suspect]
     Active Substance: IBRUTINIB
     Indication: Lymphocytic lymphoma
     Route: 048
     Dates: start: 20250110
  4. IBRUTINIB [Suspect]
     Active Substance: IBRUTINIB
     Indication: Lymphocytic lymphoma
     Route: 048
     Dates: start: 20241129, end: 20250110
  5. OCTAGAM IMMUNE GLOBULIN (HUMAN) [Concomitant]
     Active Substance: HUMAN IMMUNOGLOBULIN G
     Indication: Product used for unknown indication
     Dates: start: 20250121
  6. METAMIZOLE [Concomitant]
     Active Substance: METAMIZOLE
     Indication: Prophylaxis
     Dates: start: 20241107, end: 20241121
  7. AMOXICILLIN\CLAVULANIC ACID [Concomitant]
     Active Substance: AMOXICILLIN\CLAVULANIC ACID
     Indication: Tooth infection
     Dates: start: 20250124, end: 20250203
  8. CEFUROXIME [Concomitant]
     Active Substance: CEFUROXIME
     Indication: Antibiotic prophylaxis
     Dates: start: 20250121
  9. VENETOCLAX [Suspect]
     Active Substance: VENETOCLAX
     Indication: Chronic lymphocytic leukaemia
     Route: 048
     Dates: start: 20250215
  10. VENETOCLAX [Suspect]
     Active Substance: VENETOCLAX
     Indication: Chronic lymphocytic leukaemia
     Route: 048
     Dates: start: 20250125, end: 20250207
  11. VENETOCLAX [Suspect]
     Active Substance: VENETOCLAX
     Indication: Chronic lymphocytic leukaemia
     Route: 048
     Dates: start: 20250118, end: 20250124
  12. VENETOCLAX [Suspect]
     Active Substance: VENETOCLAX
     Indication: Chronic lymphocytic leukaemia
     Route: 048
     Dates: start: 20250208, end: 20250214
  13. VENETOCLAX [Suspect]
     Active Substance: VENETOCLAX
     Indication: Chronic lymphocytic leukaemia
     Route: 048
     Dates: start: 20250110, end: 20250117
  14. ALLOPURINOL [Concomitant]
     Active Substance: ALLOPURINOL
     Indication: Prophylaxis
     Dates: start: 20241114
  15. PREDNISOLONE [Concomitant]
     Active Substance: PREDNISOLONE
     Indication: Prophylaxis
     Dates: start: 20250121, end: 20250121

REACTIONS (5)
  - Acute generalised exanthematous pustulosis [Recovered/Resolved with Sequelae]
  - Bone pain [Recovered/Resolved with Sequelae]
  - Haemorrhage subcutaneous [Recovering/Resolving]
  - Joint swelling [Recovered/Resolved with Sequelae]
  - Tooth infection [Recovered/Resolved with Sequelae]

NARRATIVE: CASE EVENT DATE: 20241024
